FAERS Safety Report 9613474 (Version 3)
Quarter: 2013Q4

REPORT INFORMATION
  Report Type: Not Available
  Country: FR (occurrence: FR)
  Receive Date: 20131010
  Receipt Date: 20131211
  Transmission Date: 20140711
  Serious: Yes (Hospitalization)
  Sender: FDA-Public Use
  Company Number: FR-NAPPMUNDI-GBR-2013-0015940

PATIENT
  Age: 58 Year
  Sex: Female
  Weight: 54 kg

DRUGS (14)
  1. OXYCONTIN LP 10 MG, COMPRIME PELLICULE A LIBERATION PROLONGEE [Suspect]
     Indication: BACK PAIN
     Dosage: 10 MG, UNK
     Route: 048
     Dates: end: 20130420
  2. OXYNORMORO COMPRIME ORODISPERSIBLE 5 MG [Suspect]
     Indication: BACK PAIN
     Dosage: 5 MG, UNK
     Route: 048
     Dates: end: 20130420
  3. ESOMEPRAZOLE [Suspect]
     Indication: PRODUCT USED FOR UNKNOWN INDICATION
     Dosage: 20 MG, DAILY
     Route: 065
  4. EXEMESTANE [Suspect]
     Indication: PRODUCT USED FOR UNKNOWN INDICATION
     Route: 065
  5. DUROGESIC [Suspect]
     Indication: BACK PAIN
     Dosage: 75 MCG, UNK
     Dates: start: 20130417, end: 20130420
  6. CYMBALTA [Concomitant]
     Dosage: 60 MG, BID
  7. ALPRAZOLAM [Concomitant]
     Dosage: 0.5 MG, UNK
  8. AFINITOR [Concomitant]
     Indication: NEOPLASM RECURRENCE
     Dosage: 10 MG, UNK
  9. LYRICA [Concomitant]
     Dosage: 150 MG, UNK
  10. KETOPROFEN [Concomitant]
     Dosage: 100 MG, UNK
  11. AROMASINE [Concomitant]
     Indication: NEOPLASM RECURRENCE
  12. CIPROFLOXACIN [Concomitant]
     Dosage: 500 MG, BID
  13. DEPAMIDE [Concomitant]
     Dosage: 300 MG, DAILY
  14. SPASFON LYOC [Concomitant]

REACTIONS (8)
  - Toxicity to various agents [Recovered/Resolved]
  - Overdose [Recovered/Resolved]
  - Altered state of consciousness [Recovered/Resolved]
  - Bradyphrenia [Recovered/Resolved]
  - Cyanosis [Recovered/Resolved]
  - Atelectasis [Recovered/Resolved]
  - Respiratory depression [Recovered/Resolved]
  - Vomiting [Recovered/Resolved]
